FAERS Safety Report 8948108 (Version 1)
Quarter: 2012Q4

REPORT INFORMATION
  Report Type: 
  Country: JP (occurrence: JP)
  Receive Date: 20121204
  Receipt Date: 20121204
  Transmission Date: 20130627
  Serious: Yes (Hospitalization)
  Sender: FDA-Public Use
  Company Number: JP-GLAXOSMITHKLINE-B0848876A

PATIENT
  Age: 86 Year
  Sex: Male

DRUGS (9)
  1. VALTREX [Suspect]
     Indication: HERPES ZOSTER
     Dosage: 1000MG Three times per day
     Route: 048
     Dates: start: 20121119, end: 20121125
  2. AMARYL [Concomitant]
     Dosage: 1MG Twice per day
     Route: 048
  3. DIOVAN [Concomitant]
     Dosage: 80MG Per day
     Route: 048
  4. JANUVIA [Concomitant]
     Dosage: 50MG Per day
     Route: 048
  5. NORVASC [Concomitant]
     Dosage: 5MG Per day
     Route: 048
  6. ASPIRIN [Concomitant]
     Dosage: 100MG Per day
     Route: 065
  7. VOGLIBOSE [Concomitant]
     Dosage: .2MG Three times per day
     Route: 048
  8. MAGNESIUM OXIDE [Concomitant]
     Dosage: 250MG Four times per day
     Route: 048
  9. CRESTOR [Concomitant]
     Dosage: 2.5MG Per day
     Route: 048

REACTIONS (4)
  - Altered state of consciousness [Recovered/Resolved]
  - Renal failure acute [Recovering/Resolving]
  - Hypoglycaemia [Recovered/Resolved]
  - Bradycardia [Recovered/Resolved]
